FAERS Safety Report 18711496 (Version 1)
Quarter: 2021Q1

REPORT INFORMATION
  Report Type: Not Available
  Country: None (occurrence: None)
  Receive Date: 20210107
  Receipt Date: 20210107
  Transmission Date: 20210419
  Serious: Yes (Other)
  Sender: FDA-Public Use
  Company Number: US-AKORN PHARMACEUTICALS-2020AKN01431

PATIENT
  Age: 13 Year
  Sex: Male
  Weight: 88 kg

DRUGS (1)
  1. MYORISAN [Suspect]
     Active Substance: ISOTRETINOIN

REACTIONS (5)
  - Off label use [Recovered/Resolved]
  - Fatigue [Unknown]
  - Blood glucose increased [Unknown]
  - Dehydration [Unknown]
  - Diabetes mellitus inadequate control [Unknown]

NARRATIVE: CASE EVENT DATE: 20200918
